FAERS Safety Report 24338580 (Version 1)
Quarter: 2024Q3

REPORT INFORMATION
  Report Type: Spontaneous
  Country: KR (occurrence: KR)
  Receive Date: 20240919
  Receipt Date: 20240919
  Transmission Date: 20241017
  Serious: Yes (Other)
  Sender: STRIDES
  Company Number: KR-STRIDES ARCOLAB LIMITED-2024SP011987

PATIENT

DRUGS (2)
  1. POTASSIUM CHLORIDE [Suspect]
     Active Substance: POTASSIUM CHLORIDE
     Indication: Product used for unknown indication
     Dosage: UNK (1800MG TAKEN BY PATIENT^S MOTHER FOR SUPPLEMENTATION)
     Route: 064
  2. SODIUM BICARBONATE [Suspect]
     Active Substance: SODIUM BICARBONATE
     Indication: Product used for unknown indication
     Dosage: UNK (1500 MG TAKEN BY PATIENT^S MOTHER FOR METABOLIC ACIDOSIS)
     Route: 064

REACTIONS (5)
  - Premature baby [Unknown]
  - Apnoea [Recovered/Resolved]
  - Congenital central nervous system anomaly [Unknown]
  - Brain malformation [Unknown]
  - Foetal exposure during pregnancy [Unknown]
